FAERS Safety Report 16781715 (Version 1)
Quarter: 2019Q4

REPORT INFORMATION
  Report Type: Spontaneous
  Country: US (occurrence: US)
  Receive Date: 20190906
  Receipt Date: 20190906
  Transmission Date: 20200122
  Serious: Yes (Hospitalization)
  Sender: FDA-Public Use
  Company Number: None

PATIENT
  Age: 49 Year
  Sex: Female

DRUGS (6)
  1. MAGNESIUM TAB 27 MG [Concomitant]
  2. ZINC TAB 50 MG [Concomitant]
  3. VITAMIN B12 TAB 500 MCG [Concomitant]
  4. CALCIUM 600 TAB [Concomitant]
  5. BOTOX [Suspect]
     Active Substance: ONABOTULINUMTOXINA
     Indication: MIGRAINE
     Dosage: ?          OTHER FREQUENCY:EVERY 3 MONTHS;?
     Route: 030
     Dates: start: 20170502
  6. TROKENDI XR CAP 25 MG [Concomitant]

REACTIONS (1)
  - Breast cancer [None]
